FAERS Safety Report 8484078 (Version 2)
Quarter: 2012Q4

REPORT INFORMATION
  Report Type: 
  Country: JP (occurrence: JP)
  Receive Date: 20120330
  Receipt Date: 20121210
  Transmission Date: 20130627
  Serious: Yes (Death, Hospitalization)
  Sender: FDA-Public Use
  Company Number: JP-RANBAXY-2012RR-54164

PATIENT
  Age: 75 Year
  Sex: Male

DRUGS (10)
  1. PREDNISOLONE [Suspect]
     Indication: RHEUMATOID ARTHRITIS
     Dosage: 5 mg/day
     Route: 065
  2. PREDNISOLONE [Suspect]
     Indication: RHEUMATOID ARTHRITIS
     Dosage: 30 mg/day
     Route: 065
     Dates: start: 200902
  3. PREDNISOLONE [Suspect]
     Indication: RHEUMATOID ARTHRITIS
     Dosage: 25 mg/day
     Route: 065
     Dates: start: 2009, end: 200906
  4. PREDNISOLONE [Suspect]
     Indication: RHEUMATOID ARTHRITIS
     Dosage: 40 mg/day
     Route: 065
     Dates: start: 200906
  5. METHOTREXATE [Suspect]
     Indication: RHEUMATOID ARTHRITIS
     Dosage: 10 mg, 1/week
     Route: 065
     Dates: end: 200902
  6. MICAFUNGIN [Suspect]
     Indication: CRYPTOSPORIDIOSIS INFECTION
     Dosage: 150 mg/day
     Route: 065
     Dates: start: 200906
  7. MICAFUNGIN [Suspect]
     Indication: CRYPTOSPORIDIOSIS INFECTION
     Dosage: 300 mg/day
     Route: 065
     Dates: start: 200906
  8. SULBACTAM/ AMPICILLIN [Suspect]
     Indication: BRONCHITIS
     Dosage: 3 g, bid
     Route: 065
     Dates: start: 2009
  9. MEROPENEM [Suspect]
     Indication: BACTERIAL INFECTION
     Dosage: 0.5 g, bid
     Route: 065
     Dates: start: 200906
  10. CIPROFLOXACIN [Suspect]
     Indication: BACTERIAL INFECTION
     Dosage: 300 mg, bid
     Route: 065
     Dates: start: 200906

REACTIONS (4)
  - Trichosporon infection [Fatal]
  - Pseudomonas infection [Unknown]
  - Klebsiella infection [Unknown]
  - Pneumonia cryptococcal [Unknown]
